FAERS Safety Report 11947042 (Version 4)
Quarter: 2016Q1

REPORT INFORMATION
  Report Type: Spontaneous
  Country: US (occurrence: US)
  Receive Date: 20160125
  Receipt Date: 20160309
  Transmission Date: 20160526
  Serious: Yes (Hospitalization, Other)
  Sender: FDA-Public Use
  Company Number: US-TEVA-627948USA

PATIENT
  Age: 61 Year
  Sex: Female

DRUGS (4)
  1. PRAZOSIN [Suspect]
     Active Substance: PRAZOSIN
     Indication: HYPERTENSION
     Route: 048
  2. AMLODIPINE W/BENAZEPRIL [Suspect]
     Active Substance: AMLODIPINE BESYLATE\BENAZEPRIL HYDROCHLORIDE
     Indication: HYPERTENSION
     Dosage: 10MG/40MG DAILY
     Route: 048
  3. CAPTOPRIL. [Suspect]
     Active Substance: CAPTOPRIL
     Indication: HYPERTENSION
     Route: 048
  4. HYDROCHLOROTHIAZIDE, TRIAMTERENE [Suspect]
     Active Substance: HYDROCHLOROTHIAZIDE\TRIAMTERENE
     Indication: HYPERTENSION
     Dosage: TRIAMTERENE 37.5 MG/HYDROCHLONOTHIAZIDE 25 MG DAILY
     Route: 048

REACTIONS (4)
  - Acute kidney injury [Recovered/Resolved]
  - Drug withdrawal syndrome [Unknown]
  - Hypotension [Unknown]
  - Posterior reversible encephalopathy syndrome [Recovered/Resolved]
